FAERS Safety Report 11634689 (Version 1)
Quarter: 2015Q4

REPORT INFORMATION
  Report Type: Report from Study
  Country: DE (occurrence: CO)
  Receive Date: 20151015
  Receipt Date: 20151015
  Transmission Date: 20160304
  Serious: Yes (Hospitalization, Other)
  Sender: FDA-Public Use
  Company Number: DE-ACTELION-A-NJ2015-125240

PATIENT
  Age: 79 Year
  Sex: Female

DRUGS (2)
  1. VENTAVIS [Suspect]
     Active Substance: ILOPROST
     Indication: PULMONARY HYPERTENSION
     Dosage: 1 DF, 6ID
     Route: 055
     Dates: start: 20140607
  2. SILDENAFIL. [Concomitant]
     Active Substance: SILDENAFIL

REACTIONS (7)
  - Oxygen saturation decreased [Not Recovered/Not Resolved]
  - Ear discomfort [Unknown]
  - Pulmonary hypertension [Not Recovered/Not Resolved]
  - Pulmonary arterial pressure abnormal [Not Recovered/Not Resolved]
  - Oropharyngeal pain [Unknown]
  - Disease progression [Not Recovered/Not Resolved]
  - Feeling abnormal [Not Recovered/Not Resolved]

NARRATIVE: CASE EVENT DATE: 20150922
